FAERS Safety Report 4531127-1 (Version None)
Quarter: 2004Q4

REPORT INFORMATION
  Report Type: 
  Country: None (occurrence: None)
  Receive Date: 20041216
  Receipt Date: 20041130
  Transmission Date: 20050328
  Serious: Yes (Death, Hospitalization)
  Sender: FDA-Public Use
  Company Number: 2004AC00748

PATIENT
  Age: 73 Year
  Sex: Female

DRUGS (7)
  1. CRESTOR [Suspect]
     Dosage: 40 MG DAILY PO
     Route: 048
     Dates: start: 20030901, end: 20040929
  2. PANTOZOL [Concomitant]
  3. NORFLOXACIN [Concomitant]
  4. REMERON [Concomitant]
  5. NEUROLEPTICS [Concomitant]
  6. EZETROL [Concomitant]
  7. EFFEXOR [Concomitant]

REACTIONS (14)
  - ABDOMINAL PAIN [None]
  - DIARRHOEA [None]
  - GENERAL PHYSICAL HEALTH DETERIORATION [None]
  - HYPERTONIA [None]
  - HYPOKALAEMIA [None]
  - HYPONATRAEMIA [None]
  - HYPOTENSION [None]
  - INFECTION [None]
  - NAUSEA [None]
  - NEUROLEPTIC MALIGNANT SYNDROME [None]
  - PYREXIA [None]
  - RHABDOMYOLYSIS [None]
  - SINUS TACHYCARDIA [None]
  - VOMITING [None]
